FAERS Safety Report 16977325 (Version 2)
Quarter: 2019Q4

REPORT INFORMATION
  Report Type: Report from Study
  Country: US (occurrence: US)
  Receive Date: 20191031
  Receipt Date: 20191114
  Transmission Date: 20200122
  Serious: Yes (Other)
  Sender: FDA-Public Use
  Company Number: NVSC2019US011491

PATIENT
  Age: 56 Year
  Sex: Female
  Weight: 132 kg

DRUGS (3)
  1. PANITUMUMAB [Suspect]
     Active Substance: PANITUMUMAB
     Indication: COLORECTAL CANCER STAGE IV
     Dosage: UNK
     Route: 042
     Dates: start: 20190503, end: 20191003
  2. ZYPREXA [Concomitant]
     Active Substance: OLANZAPINE
     Indication: ANXIETY
     Dosage: UNK, QHS AND PRN
     Route: 065
  3. TRAMETINIB [Suspect]
     Active Substance: TRAMETINIB
     Indication: COLORECTAL CANCER STAGE IV
     Dosage: UNK
     Route: 048
     Dates: start: 20190503, end: 20191003

REACTIONS (4)
  - Rash [Recovering/Resolving]
  - Vomiting [Recovering/Resolving]
  - Abdominal pain [Recovered/Resolved with Sequelae]
  - Diarrhoea [Recovering/Resolving]

NARRATIVE: CASE EVENT DATE: 20191008
